FAERS Safety Report 7978383-5 (Version None)
Quarter: 2011Q4

REPORT INFORMATION
  Report Type: 
  Country: None (occurrence: None)
  Receive Date: 20111214
  Receipt Date: 20111205
  Transmission Date: 20120403
  Serious: Yes (Other)
  Sender: FDA-Public Use
  Company Number: FR-JNJFOC-20111203670

PATIENT
  Sex: Female

DRUGS (11)
  1. AVASTIN [Suspect]
     Route: 042
     Dates: start: 20110722
  2. ZOFRAN [Concomitant]
     Indication: PREMEDICATION
     Route: 065
     Dates: start: 20110805, end: 20110805
  3. CETIRIZINE HCL [Concomitant]
     Indication: PREMEDICATION
     Route: 065
     Dates: start: 20110705, end: 20110710
  4. DOXORUBICIN HCL [Suspect]
     Route: 042
     Dates: start: 20110805
  5. AVASTIN [Suspect]
     Route: 042
     Dates: start: 20110819
  6. AVASTIN [Suspect]
     Route: 042
     Dates: start: 20110708
  7. ZOFRAN [Concomitant]
     Route: 065
     Dates: start: 20110708, end: 20110708
  8. DOXORUBICIN HCL [Suspect]
     Indication: OVARIAN CANCER
     Route: 042
     Dates: start: 20110708
  9. AVASTIN [Suspect]
     Indication: OVARIAN CANCER
     Route: 042
     Dates: start: 20110805
  10. SOLU-MEDROL [Concomitant]
     Indication: PREMEDICATION
     Route: 065
     Dates: start: 20110708, end: 20110708
  11. SOLU-MEDROL [Concomitant]
     Route: 065
     Dates: start: 20110805, end: 20110805

REACTIONS (2)
  - SKIN TOXICITY [None]
  - PALMAR-PLANTAR ERYTHRODYSAESTHESIA SYNDROME [None]
